FAERS Safety Report 6260542-3 (Version None)
Quarter: 2009Q3

REPORT INFORMATION
  Report Type: 
  Country: None (occurrence: None)
  Receive Date: 20090708
  Receipt Date: 20090612
  Transmission Date: 20100115
  Serious: Yes (Life-Threatening, Hospitalization, Other)
  Sender: FDA-Public Use
  Company Number: PHHO2009DE06209

PATIENT
  Sex: Female
  Weight: 59.5 kg

DRUGS (3)
  1. NEORAL [Suspect]
     Indication: HEART TRANSPLANT
     Dosage: 100 MG, BID
     Route: 048
     Dates: end: 20090612
  2. NEORAL [Suspect]
     Dosage: 25 MG, BID
     Route: 048
     Dates: start: 20090612
  3. RAD 666 RAD+TAB+PTR [Suspect]
     Indication: HEART TRANSPLANT
     Dosage: 0.75 MG, BID
     Route: 048
     Dates: start: 20090427

REACTIONS (6)
  - ALANINE AMINOTRANSFERASE INCREASED [None]
  - CEREBROVASCULAR ACCIDENT [None]
  - CONTINUOUS HAEMODIAFILTRATION [None]
  - CONVULSION [None]
  - LIVER DISORDER [None]
  - RENAL FAILURE [None]
